FAERS Safety Report 5520946-0 (Version None)
Quarter: 2007Q4

REPORT INFORMATION
  Report Type: 
  Country: None (occurrence: None)
  Receive Date: 20071115
  Receipt Date: 20071002
  Transmission Date: 20080405
  Serious: Yes (Other)
  Sender: FDA-Public Use
  Company Number: 07102285

PATIENT
  Age: 57 Year
  Sex: Female

DRUGS (4)
  1. DESOXIMETASONE [Suspect]
     Indication: ECZEMA
     Dosage: 1APP,BID,TOPICAL
     Route: 061
     Dates: start: 20070829
  2. TRILEPTAL [Concomitant]
  3. PAXIL [Concomitant]
  4. KLONOPIN [Concomitant]

REACTIONS (8)
  - APPLICATION SITE EXCORIATION [None]
  - CONDITION AGGRAVATED [None]
  - ECZEMA [None]
  - GAIT DISTURBANCE [None]
  - HYPERKERATOSIS [None]
  - NO THERAPEUTIC RESPONSE [None]
  - PAIN IN EXTREMITY [None]
  - SKIN CHAPPED [None]
